FAERS Safety Report 8155951-1 (Version None)
Quarter: 2012Q1

REPORT INFORMATION
  Report Type: 
  Country: None (occurrence: None)
  Receive Date: 20120222
  Receipt Date: 20120216
  Transmission Date: 20120608
  Serious: No
  Sender: FDA-Public Use
  Company Number: US-PFIZER INC-2012042507

PATIENT
  Sex: Female
  Weight: 78.9 kg

DRUGS (3)
  1. PREMARIN [Suspect]
     Dosage: 0.45 MG, ALTERNATE DAY
     Route: 048
  2. PREMARIN [Suspect]
     Indication: HORMONE LEVEL ABNORMAL
     Dosage: 0.625 MG, 1X/DAY
     Route: 048
     Dates: start: 20081201
  3. CALCIUM [Concomitant]
     Dosage: UNK

REACTIONS (4)
  - HEADACHE [None]
  - INSOMNIA [None]
  - BREAST CALCIFICATIONS [None]
  - SKIN HYPERPIGMENTATION [None]
